FAERS Safety Report 22269760 (Version 1)
Quarter: 2023Q2

REPORT INFORMATION
  Report Type: Spontaneous
  Country: US (occurrence: US)
  Receive Date: 20230501
  Receipt Date: 20230501
  Transmission Date: 20230721
  Serious: No
  Sender: FDA-Public Use
  Company Number: US-IMMUNOCORE, LTD-2023-IMC-001481

PATIENT
  Sex: Male

DRUGS (2)
  1. KIMMTRAK [Suspect]
     Active Substance: TEBENTAFUSP-TEBN
     Indication: Product used for unknown indication
     Dosage: 20 MICROGRAM, DOSE 1
     Dates: start: 20220623, end: 20220623
  2. KIMMTRAK [Suspect]
     Active Substance: TEBENTAFUSP-TEBN
     Dosage: 30 MICROGRAM, DOSE 2
     Dates: start: 20220630, end: 20220630

REACTIONS (5)
  - Cytokine release syndrome [Recovered/Resolved]
  - Rash [Recovered/Resolved]
  - Pyrexia [Unknown]
  - Pruritus [Unknown]
  - Skin exfoliation [Unknown]
